FAERS Safety Report 14868069 (Version 1)
Quarter: 2018Q2

REPORT INFORMATION
  Report Type: Spontaneous
  Country: FR (occurrence: FR)
  Receive Date: 20180509
  Receipt Date: 20180509
  Transmission Date: 20180711
  Serious: Yes (Other)
  Sender: FDA-Public Use
  Company Number: FR-MERCK KGAA-2047432

PATIENT
  Age: 44 Year
  Sex: Female

DRUGS (1)
  1. NOVOTHYROX [Suspect]
     Active Substance: LEVOTHYROXINE SODIUM
     Indication: PRODUCT USED FOR UNKNOWN INDICATION
     Dates: start: 20170623

REACTIONS (17)
  - Mental fatigue [None]
  - Paraesthesia [None]
  - Myalgia [Recovering/Resolving]
  - Loss of personal independence in daily activities [None]
  - Anger [None]
  - Headache [None]
  - Amnesia [Recovering/Resolving]
  - Asthenia [None]
  - Social avoidant behaviour [None]
  - Hyperthyroidism [Recovering/Resolving]
  - Abdominal pain upper [None]
  - Neck pain [None]
  - Depression [Recovering/Resolving]
  - Adnexa uteri pain [None]
  - Gastrointestinal disorder [Recovering/Resolving]
  - Dizziness [Recovering/Resolving]
  - Hot flush [Recovering/Resolving]

NARRATIVE: CASE EVENT DATE: 2017
